FAERS Safety Report 17721764 (Version 1)
Quarter: 2020Q2

REPORT INFORMATION
  Report Type: Report from Study
  Country: US (occurrence: US)
  Receive Date: 20200429
  Receipt Date: 20200429
  Transmission Date: 20200714
  Serious: Yes (Death, Hospitalization, Other)
  Sender: FDA-Public Use
  Company Number: US-BRISTOL-MYERS SQUIBB COMPANY-BMS-2020-034417

PATIENT
  Age: 75 Year
  Weight: 62.13 kg

DRUGS (1)
  1. NIVOLUMAB [Suspect]
     Active Substance: NIVOLUMAB
     Indication: SQUAMOUS CELL CARCINOMA OF HEAD AND NECK
     Dosage: 480 MILLIGRAM, QD
     Route: 065
     Dates: start: 20200302

REACTIONS (3)
  - Death [Fatal]
  - Dehydration [Unknown]
  - Failure to thrive [Unknown]

NARRATIVE: CASE EVENT DATE: 202004
